FAERS Safety Report 5104819-3 (Version None)
Quarter: 2006Q3

REPORT INFORMATION
  Report Type: 
  Country: None (occurrence: None)
  Receive Date: 20060911
  Receipt Date: 20060911
  Transmission Date: 20061208
  Serious: Yes (Hospitalization)
  Sender: FDA-Public Use
  Company Number: None

PATIENT
  Sex: Male
  Weight: 78.4723 kg

DRUGS (10)
  1. SEROQUEL [Suspect]
     Indication: ANXIETY
     Dosage: 200MG  BID  PO
     Route: 048
     Dates: start: 20060330, end: 20060401
  2. SEROQUEL [Suspect]
     Indication: DEPRESSION
     Dosage: 200MG  BID  PO
     Route: 048
     Dates: start: 20060330, end: 20060401
  3. VERAPAMIL [Concomitant]
  4. QUINAPRIL [Concomitant]
  5. ALPRAZOLAM [Concomitant]
  6. PAROXETINE HCL [Concomitant]
  7. ROXICET [Concomitant]
  8. CEPHALEXIN [Concomitant]
  9. ADVIL [Concomitant]
  10. ASPIRIN [Concomitant]

REACTIONS (3)
  - ANXIETY [None]
  - HYPERHIDROSIS [None]
  - NERVOUSNESS [None]
